FAERS Safety Report 12605923 (Version 1)
Quarter: 2016Q3

REPORT INFORMATION
  Report Type: Spontaneous
  Country: US (occurrence: None)
  Receive Date: 20160728
  Receipt Date: 20160728
  Transmission Date: 20161109
  Serious: Yes (Disabling)
  Sender: FDA-Public Use
  Company Number: None

PATIENT
  Age: 46 Year
  Sex: Female
  Weight: 124.74 kg

DRUGS (13)
  1. NAC [Concomitant]
  2. ALPHA LIPOIC ACID [Concomitant]
     Active Substance: .ALPHA.-LIPOIC ACID
  3. MILK THISTLE [Concomitant]
     Active Substance: MILK THISTLE
  4. VITAMIN D3 [Concomitant]
     Active Substance: CHOLECALCIFEROL
  5. GINGER ROOT [Concomitant]
     Active Substance: GINGER
  6. CLARITIN [Concomitant]
     Active Substance: LORATADINE
  7. TURMERIC [Concomitant]
     Active Substance: TURMERIC
  8. MAGNESIUM [Concomitant]
     Active Substance: MAGNESIUM
  9. VITAMIN C [Concomitant]
     Active Substance: ASCORBIC ACID
  10. COQ10 [Concomitant]
     Active Substance: UBIDECARENONE
  11. LEVOFLOXACIN, 750 MG [Suspect]
     Active Substance: LEVOFLOXACIN
     Indication: PRODUCT USED FOR UNKNOWN INDICATION
     Dosage: 20 TABLET(S) TWICE A DAY TAKEN BY MOUTH
     Route: 048
     Dates: start: 20160111, end: 20160720
  12. MULTIVITAMIN [Concomitant]
     Active Substance: VITAMINS
  13. GINKGO BILOBA [Concomitant]
     Active Substance: GINKGO

REACTIONS (12)
  - Arthralgia [None]
  - Tendon pain [None]
  - Feeling of body temperature change [None]
  - Myalgia [None]
  - Periarthritis [None]
  - Tendonitis [None]
  - Burning sensation [None]
  - Insomnia [None]
  - Feeling abnormal [None]
  - Skin burning sensation [None]
  - Muscular weakness [None]
  - Muscle atrophy [None]

NARRATIVE: CASE EVENT DATE: 20160120
